FAERS Safety Report 8535633-4 (Version None)
Quarter: 2012Q2

REPORT INFORMATION
  Report Type: 
  Country: None (occurrence: None)
  Receive Date: 20120412
  Receipt Date: 20100809
  Transmission Date: 20120825
  Serious: Yes (Hospitalization)
  Sender: FDA-Public Use
  Company Number: PHHY2010US48594

PATIENT
  Age: 58 Year
  Sex: Female

DRUGS (1)
  1. ESTALIS COMBIPATCH (ESTRADIOL, NORETHISTERONE ACETATE) UNKNOWN [Suspect]
     Dosage: 50/140

REACTIONS (3)
  - ENDOMETRIAL CANCER [None]
  - HYSTERECTOMY [None]
  - POSTMENOPAUSAL HAEMORRHAGE [None]
